FAERS Safety Report 17660749 (Version 1)
Quarter: 2020Q2

REPORT INFORMATION
  Report Type: Spontaneous
  Country: AU (occurrence: AU)
  Receive Date: 20200413
  Receipt Date: 20200413
  Transmission Date: 20200713
  Serious: Yes (Hospitalization, Other)
  Sender: FDA-Public Use
  Company Number: AU-MYLANLABS-2020M1034859

PATIENT
  Age: 37 Year
  Sex: Male

DRUGS (10)
  1. CLOZARIL [Suspect]
     Active Substance: CLOZAPINE
     Indication: SCHIZOAFFECTIVE DISORDER
  2. CLOZAPINE. [Suspect]
     Active Substance: CLOZAPINE
     Indication: SCHIZOAFFECTIVE DISORDER
     Dosage: 350 MILLIGRAM NOCTE
  3. CLOZAPINE. [Suspect]
     Active Substance: CLOZAPINE
     Dosage: 300 MILLIGRAM NOCTE
  4. CLOZARIL [Suspect]
     Active Substance: CLOZAPINE
     Indication: ANXIETY
     Dosage: 25 MILLIGRAM, PM (2 TABLET BEFORE BED
  5. CLOPINE [Concomitant]
     Active Substance: CLOZAPINE
     Dosage: 3 TABLET BEFORE BED/PM
  6. CLOZARIL [Suspect]
     Active Substance: CLOZAPINE
     Indication: SCHIZOPHRENIA
     Dosage: 325 MILLIGRAM
     Route: 048
     Dates: start: 20071217
  7. COLOXYL WITH SENNA [Concomitant]
     Active Substance: DOCUSATE SODIUM\SENNOSIDES A AND B
     Dosage: UNK
  8. ABILIFY [Concomitant]
     Active Substance: ARIPIPRAZOLE
     Dosage: 20 MILLIGRAM, AM
  9. ARIPIPRAZOLE. [Concomitant]
     Active Substance: ARIPIPRAZOLE
     Dosage: 30 MILLIGRAM
  10. HYDROXO B12 [Concomitant]
     Dosage: 1 INJECTION IMMEDIATELY AS DIRECTED

REACTIONS (3)
  - Schizophrenia [Unknown]
  - Left ventricular dysfunction [Unknown]
  - Vertigo [Unknown]

NARRATIVE: CASE EVENT DATE: 202003
